FAERS Safety Report 6584565-X (Version None)
Quarter: 2010Q1

REPORT INFORMATION
  Report Type: 
  Country: None (occurrence: None)
  Receive Date: 20100217
  Receipt Date: 20100209
  Transmission Date: 20100710
  Serious: Yes (Death, Hospitalization)
  Sender: FDA-Public Use
  Company Number: US-CELGENEUS-163-21880-10011709

PATIENT
  Sex: Male

DRUGS (5)
  1. REVLIMID [Suspect]
     Route: 048
     Dates: start: 20090201
  2. RED BLOOD CELLS [Concomitant]
     Indication: DRUG USE FOR UNKNOWN INDICATION
     Route: 051
  3. PLATELETS [Concomitant]
     Indication: DRUG USE FOR UNKNOWN INDICATION
     Route: 051
  4. METHYLPREDNISOLONE [Concomitant]
     Route: 051
  5. METHYLPREDNISOLONE [Concomitant]
     Route: 051
     Dates: start: 20091109, end: 20091109

REACTIONS (2)
  - CARDIAC FAILURE CONGESTIVE [None]
  - CHRONIC LYMPHOCYTIC LEUKAEMIA [None]
